FAERS Safety Report 7853691-7 (Version None)
Quarter: 2011Q4

REPORT INFORMATION
  Report Type: 
  Country: None (occurrence: None)
  Receive Date: 20111026
  Receipt Date: 20111012
  Transmission Date: 20120403
  Serious: Yes (Hospitalization, Other)
  Sender: FDA-Public Use
  Company Number: US-BAYER-2010-009300

PATIENT
  Age: 30 Year
  Sex: Female
  Weight: 106.12 kg

DRUGS (8)
  1. DROSPIRENONE AND ETHINYL ESTRADIOL [Suspect]
     Indication: CONTRACEPTION
     Dosage: UNK
     Dates: start: 20081101
  2. TERBINAFINE HCL [Concomitant]
     Dosage: 250 MG, UNK
     Dates: start: 20090903
  3. DROSPIRENONE AND ETHINYL ESTRADIOL [Suspect]
     Dosage: UNK
     Dates: start: 20020101, end: 20030101
  4. YASMIN [Suspect]
     Dosage: UNK
     Dates: start: 20020101, end: 20030101
  5. YAZ [Suspect]
     Dosage: UNK
     Dates: start: 20080101
  6. YAZ [Suspect]
     Dosage: UNK
     Dates: start: 20020101, end: 20030101
  7. LAMISIL [Concomitant]
     Dosage: UNK UNK, QD
  8. YASMIN [Suspect]
     Dosage: UNK
     Dates: start: 20080101

REACTIONS (5)
  - PAIN [None]
  - INJURY [None]
  - CHOLECYSTITIS CHRONIC [None]
  - MENTAL DISORDER [None]
  - CHOLELITHIASIS [None]
